FAERS Safety Report 8351204-7 (Version None)
Quarter: 2012Q2

REPORT INFORMATION
  Report Type: 
  Country: None (occurrence: None)
  Receive Date: 20120510
  Receipt Date: 20120501
  Transmission Date: 20120825
  Serious: Yes (Hospitalization)
  Sender: FDA-Public Use
  Company Number: US-ASTRAZENECA-2010SE36347

PATIENT
  Age: 49 Year
  Sex: Male

DRUGS (2)
  1. ZOMIG [Suspect]
     Route: 045
  2. ZOMIG [Suspect]
     Route: 048

REACTIONS (2)
  - MIGRAINE [None]
  - INTENTIONAL DRUG MISUSE [None]
